FAERS Safety Report 7358245-7 (Version None)
Quarter: 2011Q1

REPORT INFORMATION
  Report Type: 
  Country: None (occurrence: None)
  Receive Date: 20110317
  Receipt Date: 20110315
  Transmission Date: 20110831
  Serious: Yes (Other)
  Sender: FDA-Public Use
  Company Number: US-AMGEN-USASP2011013243

PATIENT
  Age: 70 Year
  Sex: Male
  Weight: 86.621 kg

DRUGS (9)
  1. NPLATE [Suspect]
     Indication: IDIOPATHIC THROMBOCYTOPENIC PURPURA
     Dosage: 650 A?G, QWK
     Route: 058
     Dates: start: 20101221, end: 20110207
  2. NPLATE [Suspect]
     Indication: THROMBOCYTOPENIA
  3. PREDNISONE [Concomitant]
     Dosage: UNK
     Dates: start: 20101201
  4. NPLATE [Suspect]
     Indication: MYELODYSPLASTIC SYNDROME
  5. CORTICOSTEROIDS [Concomitant]
  6. RED BLOOD CELLS [Concomitant]
  7. ARANESP [Concomitant]
  8. PLATELETS [Concomitant]
  9. NEUPOGEN [Concomitant]

REACTIONS (4)
  - ARTHRALGIA [None]
  - PAIN IN EXTREMITY [None]
  - DRUG INEFFECTIVE [None]
  - STOMATITIS [None]
